FAERS Safety Report 9934460 (Version 1)
Quarter: 2014Q1

REPORT INFORMATION
  Report Type: Report from Study
  Country: BR (occurrence: BR)
  Receive Date: 20140228
  Receipt Date: 20140228
  Transmission Date: 20141002
  Serious: Yes (Other)
  Sender: FDA-Public Use
  Company Number: PHHY2014BR024529

PATIENT
  Age: 77 Year
  Sex: Male
  Weight: 62 kg

DRUGS (2)
  1. EXELON PATCH [Suspect]
     Indication: DEMENTIA ALZHEIMER^S TYPE
     Dosage: 9.5 MG, QD
     Route: 062
     Dates: start: 2011, end: 20140223
  2. DEPAKOTE [Concomitant]
     Dosage: UNK UKN, UNK
     Dates: start: 2011, end: 201312

REACTIONS (2)
  - Infarction [Recovering/Resolving]
  - Venous occlusion [Recovering/Resolving]
